FAERS Safety Report 13622289 (Version 1)
Quarter: 2017Q2

REPORT INFORMATION
  Report Type: Spontaneous
  Country: US (occurrence: US)
  Receive Date: 20170607
  Receipt Date: 20170607
  Transmission Date: 20170830
  Serious: Yes (Disabling)
  Sender: FDA-Public Use
  Company Number: US-ROCHE-1839974

PATIENT
  Age: 46 Year
  Sex: Female
  Weight: 119 kg

DRUGS (6)
  1. OMEPRAZOLE. [Concomitant]
     Active Substance: OMEPRAZOLE
     Indication: GASTROOESOPHAGEAL REFLUX DISEASE
     Dosage: 60 TABLETS EVERY 30 DAYS
     Route: 048
     Dates: start: 2015
  2. GABAPENTIN. [Concomitant]
     Active Substance: GABAPENTIN
     Indication: NEURALGIA
     Dosage: 90 TABLETS EVERY 30 DAYS
     Route: 065
     Dates: start: 2015
  3. TAMOXIFEN [Concomitant]
     Active Substance: TAMOXIFEN
     Indication: BREAST CANCER
     Route: 048
     Dates: start: 20160506
  4. XELODA [Suspect]
     Active Substance: CAPECITABINE
     Indication: BREAST CANCER
     Route: 048
     Dates: start: 20160527
  5. ATENOLOL. [Concomitant]
     Active Substance: ATENOLOL
     Dosage: 30 TABLETS EVERY 30 DAYS
     Route: 048
     Dates: start: 2015
  6. XELODA [Suspect]
     Active Substance: CAPECITABINE
     Dosage: 2000 MG (+ 500 MG) DAILY X14 DAYS OF FX 7 DAYS
     Route: 048
     Dates: start: 20160930, end: 20161003

REACTIONS (5)
  - Product quality issue [Unknown]
  - Rash [Recovered/Resolved]
  - Product expiration date issue [Unknown]
  - Incorrect product storage [Unknown]
  - Product lot number issue [Unknown]

NARRATIVE: CASE EVENT DATE: 20160930
